FAERS Safety Report 4729567-0 (Version None)
Quarter: 2005Q3

REPORT INFORMATION
  Report Type: 
  Country: None (occurrence: None)
  Receive Date: 20050728
  Receipt Date: 20050715
  Transmission Date: 20060218
  Serious: Yes (Hospitalization)
  Sender: FDA-Public Use
  Company Number: 214586

PATIENT
  Age: 46 Year
  Sex: Female
  Weight: 22.6799 kg

DRUGS (7)
  1. RITUXAN [Suspect]
     Indication: NON-HODGKIN'S LYMPHOMA
     Dosage: 600 MG, INTRAVENOUS
     Route: 042
     Dates: start: 20011206, end: 20020214
  2. CYCLOPHOSPHAMIDE [Suspect]
     Indication: NON-HODGKIN'S LYMPHOMA
     Dosage: 1000 MG, INTRAVENOUS
     Route: 042
     Dates: start: 20011210, end: 20020222
  3. ADRIAMYCIN PFS [Suspect]
     Indication: NON-HODGKIN'S LYMPHOMA
     Dosage: 70 MG, INTRAVENOUS
     Route: 042
     Dates: start: 20011210, end: 20020222
  4. ONCOVIN [Suspect]
     Indication: NON-HODGKIN'S LYMPHOMA
     Dosage: 2 MG , INTRAVENOUS
     Route: 042
     Dates: start: 20011210, end: 20020222
  5. PREDONINE (PREDNISOLONE SODIUM SUCCINATE, PREDNISOLONE ACETATE, PREDNI [Suspect]
     Indication: NON-HODGKIN'S LYMPHOMA
     Dosage: 70 MG, ORAL
     Route: 048
     Dates: start: 20011210, end: 20020222
  6. ACETAMINOPHEN [Concomitant]
  7. DIPHENDRAMINE HYDROCHLORIDE (DIPHENHYDRAMINE HYDROCHLORIDE) [Concomitant]

REACTIONS (1)
  - PANCYTOPENIA [None]
